FAERS Safety Report 4524610-6 (Version None)
Quarter: 2004Q4

REPORT INFORMATION
  Report Type: 
  Country: None (occurrence: None)
  Receive Date: 20041117
  Receipt Date: 20031125
  Transmission Date: 20050328
  Serious: Yes (Hospitalization)
  Sender: FDA-Public Use
  Company Number: NSADSS2003002809

PATIENT
  Age: 75 Year
  Sex: Male

DRUGS (11)
  1. LEVAQUIN [Suspect]
     Indication: PYURIA
     Dosage: 250 MG, ORAL
     Route: 048
     Dates: start: 20021212, end: 20021219
  2. COUMADIN [Suspect]
     Dosage: 3 MG
  3. FLOMAX [Concomitant]
  4. PROSCAR [Concomitant]
  5. MECLIZINE [Concomitant]
  6. METFORMIN HCL [Concomitant]
  7. AMIODARONE (AMIODARONE) [Concomitant]
  8. GLIPIZIDE [Concomitant]
  9. ZOCOR [Concomitant]
  10. FUROSEMIDE [Concomitant]
  11. PRINIVIL [Concomitant]

REACTIONS (3)
  - ANAEMIA [None]
  - DRUG INTERACTION [None]
  - INTERNATIONAL NORMALISED RATIO INCREASED [None]
